FAERS Safety Report 9613603 (Version 1)
Quarter: 2013Q4

REPORT INFORMATION
  Report Type: Spontaneous
  Country: GB (occurrence: None)
  Receive Date: 20131008
  Receipt Date: 20131008
  Transmission Date: 20140711
  Serious: Yes (Other)
  Sender: FDA-Public Use
  Company Number: KAD201309-001276

PATIENT
  Age: 60 Year
  Sex: Female

DRUGS (11)
  1. RIBAVIRIN (RIBAVIRIN) [Suspect]
     Indication: HEPATITIS C
     Route: 048
     Dates: start: 20121213
  2. INTERFERON ALFA-2A [Suspect]
     Indication: HEPATITIS C
     Route: 058
     Dates: start: 20121213
  3. TELAPREVIR [Suspect]
     Indication: HEPATITIS C
     Route: 048
     Dates: start: 20121213
  4. INTERFERON ALFA-2B (INTERFERON ALFA-2B) [Suspect]
     Route: 058
     Dates: start: 20121213
  5. AMITRIPTYLINE HYDROCHLORIDE (AMITRIPTYLINE HYDROCHLORIDE) [Concomitant]
  6. GLICLAZIDE (GLICLAZIDE) [Concomitant]
  7. INSULIN (INSULIN) [Concomitant]
  8. LORATIDINE [Concomitant]
  9. METFORMIN (METFORMIN) [Concomitant]
  10. RAMIPRIL (RAMIPRIL) [Concomitant]
  11. TERBUTALINE (TERBUTALINE) NEBULISER SOLUTION, 5MG/2ML [Concomitant]

REACTIONS (3)
  - Immune system disorder [None]
  - Neutropenia [None]
  - Thrombocytopenia [None]
